FAERS Safety Report 4397278-X (Version None)
Quarter: 2004Q3

REPORT INFORMATION
  Report Type: 
  Country: None (occurrence: None)
  Receive Date: 20040708
  Receipt Date: 20040622
  Transmission Date: 20050211
  Serious: Yes (Hospitalization)
  Sender: FDA-Public Use
  Company Number: DSA_24589_2004

PATIENT
  Age: 77 Year
  Sex: Male

DRUGS (7)
  1. TEVETEN [Suspect]
     Indication: HYPERTENSION
     Dosage: 600 MG DAILY PO
     Route: 048
     Dates: start: 20040130, end: 20040209
  2. NIFEDIPINE [Suspect]
     Indication: HYPERTENSION
     Dosage: 20 MG DAILY PO
     Route: 048
  3. SPIRONOLACTONE [Suspect]
     Indication: HYPERTENSION
     Dosage: 25 MG DAILY PO
     Route: 048
  4. BUMETANIDE [Suspect]
     Indication: HYPERTENSION
     Dosage: 1 MG DAILY PO
     Route: 048
  5. ZIFIRLUKAST [Concomitant]
  6. COLCHICINE [Concomitant]
  7. EPRAZINON [Concomitant]

REACTIONS (4)
  - CAROTID ARTERY STENOSIS [None]
  - HYPOTENSION [None]
  - LOSS OF CONSCIOUSNESS [None]
  - TRANSIENT ISCHAEMIC ATTACK [None]
